FAERS Safety Report 15842967 (Version 2)
Quarter: 2019Q2

REPORT INFORMATION
  Report Type: Spontaneous
  Country: CN (occurrence: CN)
  Receive Date: 20190118
  Receipt Date: 20190621
  Transmission Date: 20190711
  Serious: Yes (Other)
  Sender: FDA-Public Use
  Company Number: CN-009507513-1901CHN004738

PATIENT
  Age: 70 Year
  Sex: Female

DRUGS (2)
  1. FOSAMAX PLUS D [Suspect]
     Active Substance: ALENDRONATE SODIUM\CHOLECALCIFEROL
     Indication: OSTEOPOROSIS
     Dosage: 70 MILLIGRAM, QW
     Route: 048
     Dates: start: 20170524, end: 201709
  2. CALTRATE WITH VITAMIN D [Concomitant]
     Active Substance: CALCIUM CARBONATE\CHOLECALCIFEROL
     Dosage: UNK
     Dates: start: 20170524

REACTIONS (10)
  - Macular degeneration [Unknown]
  - Eating disorder [Unknown]
  - Arthralgia [Unknown]
  - Product dose omission [Unknown]
  - Tension [Unknown]
  - Suicidal ideation [Unknown]
  - Mood altered [Unknown]
  - Scleritis [Recovering/Resolving]
  - Loose tooth [Unknown]
  - Fear of disease [Unknown]

NARRATIVE: CASE EVENT DATE: 2017
